FAERS Safety Report 9888996 (Version 1)
Quarter: 2014Q1

REPORT INFORMATION
  Report Type: Spontaneous
  Country: US (occurrence: None)
  Receive Date: 20140207
  Receipt Date: 20140207
  Transmission Date: 20141002
  Serious: Yes (Other)
  Sender: FDA-Public Use
  Company Number: SYM-2014-16709

PATIENT
  Sex: 0

DRUGS (9)
  1. FLUOROURACIL [Suspect]
     Indication: ADENOCARCINOMA PANCREAS
     Route: 042
  2. OXALIPLATIN [Suspect]
     Indication: ADENOCARCINOMA PANCREAS
     Route: 042
  3. IRINOTECAN [Suspect]
     Indication: ADENOCARCINOMA PANCREAS
     Route: 042
  4. LEUCOVORIN [Suspect]
     Indication: ADENOCARCINOMA PANCREAS
     Route: 042
  5. SEROTONIN ANTAGONISTS [Concomitant]
  6. DEXAMETHASONE [Concomitant]
  7. PEGFILGRASTIM [Concomitant]
  8. DEXTROSE [Concomitant]
  9. NORMAL SALINE [Concomitant]

REACTIONS (2)
  - Nausea [None]
  - Vomiting [None]
